FAERS Safety Report 12486646 (Version 8)
Quarter: 2017Q2

REPORT INFORMATION
  Report Type: Spontaneous
  Country: US (occurrence: US)
  Receive Date: 20160621
  Receipt Date: 20170530
  Transmission Date: 20170830
  Serious: Yes (Hospitalization)
  Sender: FDA-Public Use
  Company Number: US-ACTELION-A-NJ2016-137679

PATIENT
  Age: 66 Year
  Sex: Female
  Weight: 95.69 kg

DRUGS (23)
  1. VALSARTAN. [Concomitant]
     Active Substance: VALSARTAN
  2. ASPIRIN. [Concomitant]
     Active Substance: ASPIRIN
     Dosage: UNK
     Dates: start: 2012
  3. MULTIVITAMIN [Concomitant]
     Active Substance: VITAMINS
     Dosage: UNK
     Dates: start: 2010
  4. VENTOLIN [Concomitant]
     Active Substance: ALBUTEROL SULFATE
     Dosage: UNK
  5. UPTRAVI [Suspect]
     Active Substance: SELEXIPAG
     Dosage: 200 MCG, BID
     Route: 048
     Dates: start: 20160513
  6. METHOTREXATE. [Concomitant]
     Active Substance: METHOTREXATE
  7. ROPINIROLE. [Concomitant]
     Active Substance: ROPINIROLE
  8. SIMVASTATIN. [Concomitant]
     Active Substance: SIMVASTATIN
  9. AMLODIPINE [Concomitant]
     Active Substance: AMLODIPINE BESYLATE
  10. METOPROLOL SUCCINATE. [Concomitant]
     Active Substance: METOPROLOL SUCCINATE
  11. UPTRAVI [Suspect]
     Active Substance: SELEXIPAG
     Dosage: 800 MCG, BID
     Route: 048
     Dates: start: 20160708
  12. PROPYLENE GLYCOL [Concomitant]
     Active Substance: PROPYLENE GLYCOL
     Dosage: UNK
     Dates: start: 2008
  13. OPSUMIT [Suspect]
     Active Substance: MACITENTAN
     Indication: PULMONARY ARTERIAL HYPERTENSION
     Dosage: 10 MG, QD
     Route: 048
     Dates: start: 20150522
  14. PREDNISONE. [Concomitant]
     Active Substance: PREDNISONE
     Dosage: UNK
     Dates: start: 2010
  15. PRILOSEC [Concomitant]
     Active Substance: OMEPRAZOLE MAGNESIUM
     Dosage: UNK
  16. TUDORZA PRESSAIR [Concomitant]
     Active Substance: ACLIDINIUM BROMIDE
  17. TRAMADOL. [Concomitant]
     Active Substance: TRAMADOL
  18. FOLIC ACID. [Concomitant]
     Active Substance: FOLIC ACID
  19. ACLIDINIUM BROMIDE [Concomitant]
     Active Substance: ACLIDINIUM BROMIDE
     Dosage: UNK
  20. PILOCARPINE. [Concomitant]
     Active Substance: PILOCARPINE
  21. UMECLIDINIUM [Concomitant]
     Active Substance: UMECLIDINIUM BROMIDE
     Dosage: UNK
     Dates: start: 2010
  22. UPTRAVI [Suspect]
     Active Substance: SELEXIPAG
     Indication: PULMONARY ARTERIAL HYPERTENSION
     Dosage: 400 MCG, BID
     Route: 048
  23. TADALAFIL [Concomitant]
     Active Substance: TADALAFIL
     Dosage: 40 MG, QD
     Dates: start: 201311

REACTIONS (11)
  - Dyspnoea [Unknown]
  - Diarrhoea [Recovered/Resolved]
  - Insomnia [Unknown]
  - Cardiac pacemaker insertion [Recovered/Resolved]
  - Urticaria [Recovering/Resolving]
  - Pruritus [Recovering/Resolving]
  - Atrioventricular block complete [Recovered/Resolved]
  - Nausea [Unknown]
  - Headache [Recovered/Resolved]
  - Bronchitis [Recovering/Resolving]
  - Sinusitis [Recovering/Resolving]

NARRATIVE: CASE EVENT DATE: 20160513
